FAERS Safety Report 9313330 (Version 1)
Quarter: 2013Q2

REPORT INFORMATION
  Report Type: Spontaneous
  Country: US (occurrence: US)
  Receive Date: 20130528
  Receipt Date: 20130528
  Transmission Date: 20140414
  Serious: No
  Sender: FDA-Public Use
  Company Number: US-ABBOTT-13P-163-1058605-00

PATIENT
  Age: 68 Year
  Sex: Male
  Weight: 83.54 kg

DRUGS (7)
  1. ANDROGEL 1.62% [Suspect]
     Indication: BLOOD TESTOSTERONE DECREASED
     Dosage: APPLIES 1 PUMP PER SHOULDER DAILY
     Route: 061
     Dates: start: 20120108, end: 20130220
  2. ANDROGEL 1.62% [Suspect]
  3. ANDROGEL 1.62% [Suspect]
     Dosage: 1% PACKETS
     Route: 061
     Dates: start: 20130312
  4. METOPROLOL [Concomitant]
     Indication: ATRIAL FIBRILLATION
     Route: 048
  5. WARFARIN [Concomitant]
     Indication: PRODUCT USED FOR UNKNOWN INDICATION
     Dosage: 5 TO 5.5 DAILY EOD
  6. DIGOXIN [Concomitant]
     Indication: PRODUCT USED FOR UNKNOWN INDICATION
     Route: 048
  7. SIMVASTATIN [Concomitant]
     Indication: BLOOD CHOLESTEROL INCREASED
     Route: 048

REACTIONS (1)
  - Mood swings [Recovered/Resolved]
